FAERS Safety Report 22390520 (Version 3)
Quarter: 2024Q1

REPORT INFORMATION
  Report Type: Report from Study
  Country: US (occurrence: US)
  Receive Date: 20230531
  Receipt Date: 20240215
  Transmission Date: 20240409
  Serious: Yes (Hospitalization)
  Sender: FDA-Public Use
  Company Number: US-BAUSCH-BL-2021-016152

PATIENT
  Age: 63 Year
  Sex: Male

DRUGS (2)
  1. SILIQ [Suspect]
     Active Substance: BRODALUMAB
     Indication: Psoriasis
     Dosage: 210MG/1.5ML
     Route: 065
     Dates: end: 202103
  2. SILIQ [Suspect]
     Active Substance: BRODALUMAB
     Dosage: 210MG/1.5ML
     Route: 065
     Dates: end: 202303

REACTIONS (4)
  - Psoriasis [Not Recovered/Not Resolved]
  - Therapy interrupted [Unknown]
  - Impaired quality of life [Unknown]
  - Inability to afford medication [Unknown]

NARRATIVE: CASE EVENT DATE: 20210101
